FAERS Safety Report 24062150 (Version 1)
Quarter: 2024Q3

REPORT INFORMATION
  Report Type: Spontaneous
  Country: US (occurrence: None)
  Receive Date: 20240707
  Receipt Date: 20240707
  Transmission Date: 20241017
  Serious: Yes (Other)
  Sender: Public
  Company Number: None

PATIENT
  Age: 54 Year
  Sex: Male
  Weight: 117 kg

DRUGS (1)
  1. HERBALS\MITRAGYNINE [Suspect]
     Active Substance: HERBALS\MITRAGYNINE
     Indication: Substance use
     Dosage: OTHER FREQUENCY : 8 TIMES PER DAY?
     Route: 048
     Dates: start: 20210101, end: 20240707

REACTIONS (1)
  - Drug dependence [None]

NARRATIVE: CASE EVENT DATE: 20240707
